FAERS Safety Report 14927963 (Version 6)
Quarter: 2020Q1

REPORT INFORMATION
  Report Type: Spontaneous
  Country: US (occurrence: US)
  Receive Date: 20180523
  Receipt Date: 20200327
  Transmission Date: 20200409
  Serious: Yes (Other)
  Sender: FDA-Public Use
  Company Number: US-JAZZ-JPI-P-033674

PATIENT
  Sex: Female
  Weight: 63.64 kg

DRUGS (6)
  1. XYREM [Suspect]
     Active Substance: SODIUM OXYBATE
     Dosage: 4.5 GRAM, BID
     Route: 048
     Dates: start: 2011, end: 2017
  2. XYREM [Suspect]
     Active Substance: SODIUM OXYBATE
     Indication: NARCOLEPSY
     Dosage: 2.25 GRAM, BID
     Route: 048
     Dates: start: 20090626, end: 200907
  3. XYREM [Suspect]
     Active Substance: SODIUM OXYBATE
     Dosage: UNKNOWN DOSE
     Route: 048
     Dates: start: 200907, end: 2011
  4. XYREM [Suspect]
     Active Substance: SODIUM OXYBATE
     Dosage: 4 GRAM, BID
     Route: 048
     Dates: start: 2017
  5. XANAX [Suspect]
     Active Substance: ALPRAZOLAM
     Indication: ANXIETY
  6. XANAX [Suspect]
     Active Substance: ALPRAZOLAM
     Indication: SOCIAL ANXIETY DISORDER

REACTIONS (18)
  - Drug dependence [Unknown]
  - Social anxiety disorder [Unknown]
  - Enuresis [Unknown]
  - Photophobia [Recovering/Resolving]
  - Dizziness [Recovering/Resolving]
  - Hypoaesthesia [Unknown]
  - Anxiety [Unknown]
  - Suicide attempt [Unknown]
  - Migraine [Unknown]
  - Myoclonus [Unknown]
  - Hallucinations, mixed [Unknown]
  - Panic attack [Not Recovered/Not Resolved]
  - Intentional product use issue [Unknown]
  - Gastrointestinal haemorrhage [Recovering/Resolving]
  - Disability [Unknown]
  - Unresponsive to stimuli [Unknown]
  - Depression [Unknown]
  - Suicidal ideation [Not Recovered/Not Resolved]

NARRATIVE: CASE EVENT DATE: 2012
